FAERS Safety Report 21151515 (Version 1)
Quarter: 2022Q3

REPORT INFORMATION
  Report Type: Spontaneous
  Country: IT (occurrence: IT)
  Receive Date: 20220730
  Receipt Date: 20220730
  Transmission Date: 20221027
  Serious: Yes (Other)
  Sender: FDA-Public Use
  Company Number: None

PATIENT
  Age: 51 Year
  Sex: Female

DRUGS (1)
  1. SIPONIMOD [Suspect]
     Active Substance: SIPONIMOD
     Indication: Product used for unknown indication
     Dosage: SIPONIMOD 2 MG 1 CP/DIE. SOSPESO IN DATA ODIERNA PER LE REAZIONI AVVERSE
     Route: 048
     Dates: start: 20220616, end: 20220718

REACTIONS (5)
  - Leukopenia [Not Recovered/Not Resolved]
  - Ecchymosis [Not Recovered/Not Resolved]
  - Vertigo [Not Recovered/Not Resolved]
  - Lymphopenia [Not Recovered/Not Resolved]
  - Headache [Not Recovered/Not Resolved]

NARRATIVE: CASE EVENT DATE: 20220710
